FAERS Safety Report 11004097 (Version 1)
Quarter: 2015Q2

REPORT INFORMATION
  Report Type: Spontaneous
  Country: NL (occurrence: None)
  Receive Date: 20150407
  Receipt Date: 20150407
  Transmission Date: 20150821
  Serious: Yes (Other)
  Sender: FDA-Public Use
  Company Number: FK201501635

PATIENT
  Age: 59 Year
  Sex: Male

DRUGS (2)
  1. IDARUBICIN HYDROCHLORIDE (MANUFACTURER UNKNOWN) (IDARUBICIN HYDROCHLORIDE) (IDARUBICIN HYDROCHLORIDE) [Suspect]
     Active Substance: IDARUBICIN HYDROCHLORIDE
     Indication: MYELODYSPLASTIC SYNDROME
     Dosage: DAYS 1, 3, 5
  2. CYTARABINE (MANUFACTURER UNKNOWN) (CYTARABINE) (CYTARABINE) [Suspect]
     Active Substance: CYTARABINE
     Indication: MYELODYSPLASTIC SYNDROME
     Dosage: DAYS 1-10

REACTIONS (3)
  - Cholecystitis [None]
  - Hyperbilirubinaemia [None]
  - Neutropenic colitis [None]
